FAERS Safety Report 21955406 (Version 1)
Quarter: 2023Q1

REPORT INFORMATION
  Report Type: Spontaneous
  Country: EG (occurrence: EG)
  Receive Date: 20230206
  Receipt Date: 20230206
  Transmission Date: 20230418
  Serious: Yes (Life-Threatening, Other)
  Sender: FDA-Public Use
  Company Number: EG-NOVOPROD-1017759

PATIENT
  Age: 57 Year
  Sex: Female

DRUGS (7)
  1. ALLOPURINOL [Concomitant]
     Active Substance: ALLOPURINOL
     Indication: Gout
     Dosage: ONCE DAILY
     Route: 048
     Dates: start: 20220714
  2. VITAMIN B12 [Concomitant]
     Active Substance: CYANOCOBALAMIN
     Indication: Vitamin supplementation
     Dosage: 1 AMP. TWICE WEEKLY
     Route: 030
     Dates: start: 20220714
  3. BENFOTIAMINE\CYANOCOBALAMIN\PYRIDOXINE HYDROCHLORIDE [Concomitant]
     Active Substance: BENFOTIAMINE\CYANOCOBALAMIN\PYRIDOXINE HYDROCHLORIDE
     Indication: Nervous system disorder prophylaxis
     Dosage: ONCE DAILY
     Route: 048
     Dates: start: 20220714
  4. CALCIUM [Concomitant]
     Active Substance: CALCIUM
     Indication: Mineral supplementation
     Dosage: ONCE DAILY
     Route: 048
     Dates: start: 20220714
  5. AMARYL [Concomitant]
     Active Substance: GLIMEPIRIDE
     Indication: Diabetes mellitus
     Dosage: ONCE OR TWICE DAILY (STARTED FROM 18 YEARS)
     Route: 048
  6. ASPIRIN [Concomitant]
     Active Substance: ASPIRIN
     Indication: Anticoagulant therapy
     Dosage: ONCE DAILY
     Route: 048
     Dates: start: 20220714
  7. INSULIN HUMAN [Suspect]
     Active Substance: INSULIN HUMAN
     Indication: Diabetes mellitus
     Dosage: 30 IU/MORNING. AND 20 OR 30 IU/NIGHT
     Route: 058

REACTIONS (4)
  - Diabetic hyperglycaemic coma [Recovered/Resolved]
  - Renal failure [Unknown]
  - Injection site scar [Not Recovered/Not Resolved]
  - Wrong technique in product usage process [Unknown]

NARRATIVE: CASE EVENT DATE: 20220401
